FAERS Safety Report 4715004-9 (Version None)
Quarter: 2005Q3

REPORT INFORMATION
  Report Type: 
  Country: None (occurrence: None)
  Receive Date: 20050715
  Receipt Date: 20050217
  Transmission Date: 20060218
  Serious: Yes (Other)
  Sender: FDA-Public Use
  Company Number: 200511314US

PATIENT
  Sex: Female
  Weight: 61 kg

DRUGS (2)
  1. LANTUS [Suspect]
     Indication: DIABETES MELLITUS
     Dosage: DOSE UNIT: UNITS
     Dates: start: 20020901, end: 20040701
  2. HUMALOG [Concomitant]
     Dosage: DOSE: NOT PROVIDED

REACTIONS (13)
  - ABORTION SPONTANEOUS [None]
  - ALANINE AMINOTRANSFERASE INCREASED [None]
  - BLOOD GLUCOSE INCREASED [None]
  - DIABETES MELLITUS INADEQUATE CONTROL [None]
  - DRUG EXPOSURE DURING PREGNANCY [None]
  - GLYCOSYLATED HAEMOGLOBIN INCREASED [None]
  - GOITRE [None]
  - LIPIDS INCREASED [None]
  - LOW DENSITY LIPOPROTEIN INCREASED [None]
  - POLYDIPSIA [None]
  - POLYURIA [None]
  - PREGNANCY [None]
  - UNINTENDED PREGNANCY [None]
